FAERS Safety Report 10933006 (Version 1)
Quarter: 2015Q1

REPORT INFORMATION
  Report Type: Spontaneous
  Country: AT (occurrence: AT)
  Receive Date: 20150320
  Receipt Date: 20150320
  Transmission Date: 20150721
  Serious: Yes (Hospitalization)
  Sender: FDA-Public Use
  Company Number: AT-ABBVIE-15K-009-1361357-00

PATIENT
  Sex: Female

DRUGS (3)
  1. HUMIRA [Suspect]
     Active Substance: ADALIMUMAB
     Route: 065
  2. HUMIRA [Suspect]
     Active Substance: ADALIMUMAB
     Indication: CROHN^S DISEASE
     Route: 065
  3. HUMIRA [Suspect]
     Active Substance: ADALIMUMAB
     Route: 065

REACTIONS (10)
  - Angioedema [Recovering/Resolving]
  - Headache [Recovering/Resolving]
  - Hypersensitivity [Recovering/Resolving]
  - Rash generalised [Recovering/Resolving]
  - Arthralgia [Recovering/Resolving]
  - Embolism [Recovering/Resolving]
  - Bronchospasm [Unknown]
  - Protein C deficiency [Recovering/Resolving]
  - Paraesthesia [Recovering/Resolving]
  - Tachyarrhythmia [Recovering/Resolving]

NARRATIVE: CASE EVENT DATE: 2010
